FAERS Safety Report 4445620-3 (Version None)
Quarter: 2004Q3

REPORT INFORMATION
  Report Type: 
  Country: None (occurrence: None)
  Receive Date: 20040902
  Receipt Date: 20040818
  Transmission Date: 20050211
  Serious: No
  Sender: FDA-Public Use
  Company Number: A01200403967

PATIENT
  Age: 60 Year
  Sex: Male

DRUGS (2)
  1. XATRAL  - (ALFUZOSIN) - TABLET - 10 MG [Suspect]
     Indication: BENIGN PROSTATIC HYPERPLASIA
     Dosage: 10 MG, ORAL
     Route: 048
  2. COZAAR [Concomitant]

REACTIONS (1)
  - ANGINA PECTORIS [None]
